FAERS Safety Report 22235397 (Version 2)
Quarter: 2023Q2

REPORT INFORMATION
  Report Type: Spontaneous
  Country: PT (occurrence: PT)
  Receive Date: 20230420
  Receipt Date: 20230603
  Transmission Date: 20230722
  Serious: Yes (Other)
  Sender: FDA-Public Use
  Company Number: None

PATIENT
  Age: 72 Year
  Sex: Male

DRUGS (8)
  1. BISOPROLOL [Interacting]
     Active Substance: BISOPROLOL
     Indication: Product used for unknown indication
     Dosage: 10 MILLIGRAM DAILY; 1 PILL PER DAY
     Route: 065
     Dates: start: 20230225
  2. GLICLAZIDE [Interacting]
     Active Substance: GLICLAZIDE
     Indication: Product used for unknown indication
     Dosage: TOOK FOR 1 WEEK IN FEBRUARY 2023
     Route: 065
     Dates: start: 20230221, end: 20230228
  3. CLOPIDOGREL [Interacting]
     Active Substance: CLOPIDOGREL BISULFATE
     Indication: Product used for unknown indication
     Dosage: START OF SUSPECTED TAKING IN 2017
     Route: 065
  4. SYNJARDY [Interacting]
     Active Substance: EMPAGLIFLOZIN\METFORMIN HYDROCHLORIDE
     Indication: Product used for unknown indication
     Dosage: 1 TABLET AT BREAKFAST AND 1 TABLET AT DINNER FOR ACTIVE INGREDIENT METFORMIN, HYDROCHLORIDE THE STRE
     Dates: start: 20230225
  5. AZILSARTAN KAMEDOXOMIL\CHLORTHALIDONE [Interacting]
     Active Substance: AZILSARTAN KAMEDOXOMIL\CHLORTHALIDONE
     Indication: Product used for unknown indication
     Dosage: 1 PILL ON AN EMPTY STOMACH FOR ACTIVE INGREDIENT AZILSARTAN MEDOXOMIL POTASSIUM THE STRENGTH IS 40 M
     Route: 065
     Dates: start: 20230225
  6. TRULICITY [Interacting]
     Active Substance: DULAGLUTIDE
     Indication: Product used for unknown indication
     Route: 065
  7. FINASTERIDE [Interacting]
     Active Substance: FINASTERIDE
     Indication: Product used for unknown indication
  8. FENOFIBRATE\PRAVASTATIN [Interacting]
     Active Substance: FENOFIBRATE\PRAVASTATIN
     Indication: Product used for unknown indication
     Dosage: THERAPY START DATE AND END DATE: NASK, START OF SUSPECTED TAKING IN 2017
     Route: 065

REACTIONS (4)
  - Dizziness [Recovering/Resolving]
  - Photophobia [Recovered/Resolved]
  - Drug interaction [Recovering/Resolving]
  - Drug interaction [Recovering/Resolving]

NARRATIVE: CASE EVENT DATE: 20230225
